FAERS Safety Report 24055917 (Version 3)
Quarter: 2024Q3

REPORT INFORMATION
  Report Type: Report from Study
  Country: US (occurrence: US)
  Receive Date: 20240705
  Receipt Date: 20240926
  Transmission Date: 20241017
  Serious: Yes (Hospitalization)
  Sender: VERTEX
  Company Number: US-VERTEX PHARMACEUTICALS-2024-006702

PATIENT
  Sex: Female
  Weight: 24 kg

DRUGS (1)
  1. TRIKAFTA [Suspect]
     Active Substance: ELEXACAFTOR\IVACAFTOR\TEZACAFTOR
     Indication: Cystic fibrosis
     Dosage: 2 ORANGE TABS IN AM AND 1 LIGHT BLUE TAB IN PM
     Route: 048

REACTIONS (4)
  - Haemoptysis [Unknown]
  - Epistaxis [Unknown]
  - Gingival bleeding [Unknown]
  - Drug ineffective [Unknown]
